FAERS Safety Report 6987637-0 (Version None)
Quarter: 2010Q3

REPORT INFORMATION
  Report Type: 
  Country: None (occurrence: None)
  Receive Date: 20100916
  Receipt Date: 20100907
  Transmission Date: 20110219
  Serious: Yes (Hospitalization)
  Sender: FDA-Public Use
  Company Number: US-NOVOPROD-314362

PATIENT
  Age: 68 Year
  Sex: Female
  Weight: 85.714 kg

DRUGS (1)
  1. VICTOZA [Suspect]
     Indication: DIABETES MELLITUS
     Dosage: 0.6 MG, QD
     Route: 058
     Dates: start: 20100830, end: 20100903

REACTIONS (2)
  - BLOOD TRIGLYCERIDES DECREASED [None]
  - PANCREATITIS ACUTE [None]
